FAERS Safety Report 9038793 (Version 1)
Quarter: 2013Q1

REPORT INFORMATION
  Report Type: Spontaneous
  Country: US (occurrence: None)
  Receive Date: 20130122
  Receipt Date: 20130122
  Transmission Date: 20140127
  Serious: No
  Sender: FDA-Public Use
  Company Number: None

PATIENT
  Age: 47 Year
  Sex: Female

DRUGS (1)
  1. LYRICA [Suspect]
     Dosage: 1 CAPSULE AT BEDTIME
     Dates: start: 201209, end: 201211

REACTIONS (4)
  - Tremor [None]
  - Amnesia [None]
  - Visual impairment [None]
  - Insomnia [None]
